FAERS Safety Report 9365128 (Version 1)
Quarter: 2013Q2

REPORT INFORMATION
  Report Type: Spontaneous
  Country: US (occurrence: US)
  Receive Date: 20130624
  Receipt Date: 20130624
  Transmission Date: 20140414
  Serious: Yes (Hospitalization, Other)
  Sender: FDA-Public Use
  Company Number: PHHY2013US063044

PATIENT
  Age: 66 Year
  Sex: Female

DRUGS (9)
  1. OXALIPLATIN [Suspect]
     Dates: start: 200502
  2. OXALIPLATIN [Suspect]
     Dosage: 85 MG/M2
     Route: 042
     Dates: start: 201007
  3. 5 FLUORO URACIL [Concomitant]
     Dates: start: 200502
  4. 5 FLUORO URACIL [Concomitant]
     Dosage: 400 MG/M2
     Route: 040
     Dates: start: 201007
  5. 5 FLUORO URACIL [Concomitant]
     Dosage: 2400 MG/M2 OVER 46 H
     Route: 042
  6. FOLINIC ACID [Concomitant]
     Dates: start: 200502
  7. FOLINIC ACID [Concomitant]
     Dosage: 400 MG/M2
     Route: 042
     Dates: start: 201007
  8. BEVACIZUMAB [Concomitant]
     Dates: start: 200502
  9. BEVACIZUMAB [Concomitant]
     Dosage: 5 MG/KG OVER 90 MIN
     Dates: start: 201007

REACTIONS (8)
  - Disseminated intravascular coagulation [Recovered/Resolved]
  - Thrombocytopenia [Recovered/Resolved]
  - Ecchymosis [Unknown]
  - Haematuria [Recovered/Resolved]
  - Anaemia [Recovered/Resolved]
  - Dyspnoea [Unknown]
  - Chest pain [Unknown]
  - Back pain [Unknown]
